FAERS Safety Report 20190210 (Version 2)
Quarter: 2022Q1

REPORT INFORMATION
  Report Type: Spontaneous
  Country: TR (occurrence: None)
  Receive Date: 20211215
  Receipt Date: 20220121
  Transmission Date: 20220423
  Serious: Yes (Death)
  Sender: FDA-Public Use
  Company Number: TR-Merck Healthcare KGaA-9285630

PATIENT
  Age: 49 Year
  Sex: Female

DRUGS (3)
  1. MAVENCLAD [Suspect]
     Active Substance: CLADRIBINE
     Indication: Multiple sclerosis
  2. INVESTIGATIONAL PRODUCT [Concomitant]
     Active Substance: INVESTIGATIONAL PRODUCT
     Indication: COVID-19 immunisation
     Dosage: FIRST DOSE
     Dates: start: 2020
  3. INVESTIGATIONAL PRODUCT [Concomitant]
     Active Substance: INVESTIGATIONAL PRODUCT
     Dosage: SECOND DOSE
     Dates: start: 2020

REACTIONS (1)
  - COVID-19 [Fatal]
